FAERS Safety Report 9348621 (Version 2)
Quarter: 2013Q2

REPORT INFORMATION
  Report Type: Spontaneous
  Country: FR (occurrence: FR)
  Receive Date: 20130614
  Receipt Date: 20130629
  Transmission Date: 20140414
  Serious: Yes (Other)
  Sender: FDA-Public Use
  Company Number: FR-TEVA-412196ISR

PATIENT
  Age: 90 Year
  Sex: Male

DRUGS (3)
  1. FUROSEMIDE TEVA 40MG [Suspect]
     Indication: OEDEMA
     Dosage: 80 MILLIGRAM DAILY;
     Route: 048
  2. PREVISCAN [Concomitant]
  3. INSULIN [Concomitant]

REACTIONS (3)
  - Pleural effusion [Recovering/Resolving]
  - Oedema peripheral [Recovered/Resolved]
  - Asthenia [Recovering/Resolving]
